FAERS Safety Report 5377412-5 (Version None)
Quarter: 2007Q3

REPORT INFORMATION
  Report Type: 
  Country: None (occurrence: None)
  Receive Date: 20070703
  Receipt Date: 20070622
  Transmission Date: 20080115
  Serious: Yes (Other)
  Sender: FDA-Public Use
  Company Number: B0473928A

PATIENT
  Age: 53 Year
  Sex: Male
  Weight: 74 kg

DRUGS (3)
  1. LAMICTAL [Suspect]
     Indication: EPILEPSY
     Route: 048
  2. LEXOMIL [Concomitant]
     Route: 065
  3. URBANYL [Concomitant]
     Route: 065

REACTIONS (4)
  - ABDOMINAL PAIN [None]
  - CONSTIPATION [None]
  - CONVULSION [None]
  - GASTROINTESTINAL MOTILITY DISORDER [None]
